FAERS Safety Report 21969366 (Version 1)
Quarter: 2023Q1

REPORT INFORMATION
  Report Type: Spontaneous
  Country: US (occurrence: None)
  Receive Date: 20230207
  Receipt Date: 20230207
  Transmission Date: 20230417
  Serious: No
  Sender: FDA-Public Use
  Company Number: None

PATIENT
  Age: 39 Year
  Sex: Female
  Weight: 134.26 kg

DRUGS (1)
  1. HUMIRA [Suspect]
     Active Substance: ADALIMUMAB
     Indication: Hidradenitis
     Dosage: INJECT 80MG  SUBCUTANEOUSLY EVERY 2 WEEKS AS DIRECTED    ?
     Route: 058
     Dates: start: 202107

REACTIONS (2)
  - Cellulitis [None]
  - Abdominal pain upper [None]
